FAERS Safety Report 6500623-X (Version None)
Quarter: 2009Q4

REPORT INFORMATION
  Report Type: 
  Country: None (occurrence: None)
  Receive Date: 20091216
  Receipt Date: 20081205
  Transmission Date: 20100525
  Serious: No
  Sender: FDA-Public Use
  Company Number: A0759761A

PATIENT
  Age: 48 Year
  Sex: Female

DRUGS (2)
  1. COMMIT [Suspect]
  2. UNKNOWN [Concomitant]

REACTIONS (3)
  - CHAPPED LIPS [None]
  - CONSTIPATION [None]
  - INSOMNIA [None]
